FAERS Safety Report 9916897 (Version 2)
Quarter: 2014Q1

REPORT INFORMATION
  Report Type: Spontaneous
  Country: US (occurrence: US)
  Receive Date: 20140221
  Receipt Date: 20140221
  Transmission Date: 20141002
  Serious: Yes (Other)
  Sender: FDA-Public Use
  Company Number: US-009507513-0705USA02645

PATIENT
  Sex: Female

DRUGS (4)
  1. FOSAMAX [Suspect]
     Indication: OSTEOPOROSIS
     Dosage: 5 MG, QD
     Route: 048
     Dates: start: 19990225
  2. FOSAMAX [Suspect]
     Indication: OSTEOPENIA
     Dosage: 10 MG, QD
     Route: 048
     Dates: start: 20000505, end: 20010822
  3. FOSAMAX [Suspect]
     Dosage: 70 MG, QW
     Route: 048
     Dates: start: 20010822, end: 20060226
  4. LIPITOR [Concomitant]
     Dates: start: 199907, end: 200706

REACTIONS (5)
  - Osteonecrosis of jaw [Not Recovered/Not Resolved]
  - Haematuria [Unknown]
  - Hypertension [Unknown]
  - Rectal haemorrhage [Unknown]
  - Osteomyelitis [Unknown]
